FAERS Safety Report 7356057-1 (Version None)
Quarter: 2011Q1

REPORT INFORMATION
  Report Type: 
  Country: None (occurrence: None)
  Receive Date: 20110316
  Receipt Date: 20110309
  Transmission Date: 20110831
  Serious: Yes (Death, Other)
  Sender: FDA-Public Use
  Company Number: GB-ELI_LILLY_AND_COMPANY-GB201103002763

PATIENT
  Age: 57 Year
  Sex: Female

DRUGS (1)
  1. OLANZAPINE [Suspect]
     Indication: SCHIZOPHRENIA
     Route: 048

REACTIONS (2)
  - PULMONARY HYPERTENSION [None]
  - SUDDEN CARDIAC DEATH [None]
